FAERS Safety Report 23473782 (Version 1)
Quarter: 2024Q1

REPORT INFORMATION
  Report Type: Spontaneous
  Country: US (occurrence: US)
  Receive Date: 20240203
  Receipt Date: 20240203
  Transmission Date: 20240410
  Serious: No
  Sender: FDA-Public Use
  Company Number: US-BRISTOL-MYERS SQUIBB COMPANY-2024-015538

PATIENT
  Age: 54 Year
  Sex: Female
  Weight: 88.9 kg

DRUGS (1)
  1. ONUREG [Suspect]
     Active Substance: AZACITIDINE
     Indication: Product used for unknown indication
     Dosage: 2WKSON/2WKSOFF
     Route: 048
     Dates: start: 20240101

REACTIONS (2)
  - Abdominal discomfort [Recovering/Resolving]
  - Vomiting [Unknown]
